FAERS Safety Report 21482037 (Version 1)
Quarter: 2022Q4

REPORT INFORMATION
  Report Type: Spontaneous
  Country: BR (occurrence: BR)
  Receive Date: 20221020
  Receipt Date: 20221020
  Transmission Date: 20230113
  Serious: Yes (Hospitalization, Other)
  Sender: FDA-Public Use
  Company Number: BR-SUN PHARMACEUTICAL INDUSTRIES LTD-2022R1-340015

PATIENT
  Weight: 1.89 kg

DRUGS (3)
  1. DEXAMETHASONE [Suspect]
     Active Substance: DEXAMETHASONE
     Indication: Atrioventricular block second degree
     Dosage: 4 MILLIGRAM
     Route: 064
  2. TERBUTALINE [Suspect]
     Active Substance: TERBUTALINE
     Indication: Atrioventricular block second degree
     Dosage: 10 MILLIGRAM, DAILY
     Route: 064
  3. ALBUTEROL [Suspect]
     Active Substance: ALBUTEROL
     Indication: Atrioventricular block second degree
     Dosage: 6 MILLIGRAM, DAILY
     Route: 064

REACTIONS (4)
  - Foetal exposure during pregnancy [Unknown]
  - Premature baby [Unknown]
  - Bradycardia [Unknown]
  - Low birth weight baby [Unknown]
